FAERS Safety Report 8495382-8 (Version None)
Quarter: 2012Q3

REPORT INFORMATION
  Report Type: 
  Country: None (occurrence: None)
  Receive Date: 20120702
  Receipt Date: 20120702
  Transmission Date: 20120928
  Serious: Yes (Other)
  Sender: FDA-Public Use
  Company Number: None

PATIENT
  Age: 28 Month
  Sex: Female
  Weight: 13.6079 kg

DRUGS (2)
  1. CAVILON NO STING BARRIER FILM 28ML - 3M-3346- 3M HEALTH CARE [Suspect]
     Indication: ERYTHEMA
     Dosage: COUPLE SPRAYS TO COVER AREA EVERY 8 HOURS OTHER  ONCE ONLY DUE TO REACTION
     Route: 050
     Dates: start: 20120630, end: 20120630
  2. CAVILON NO STING BARRIER FILM 28ML - 3M-3346- 3M HEALTH CARE [Suspect]
     Indication: DERMATITIS DIAPER
     Dosage: COUPLE SPRAYS TO COVER AREA EVERY 8 HOURS OTHER  ONCE ONLY DUE TO REACTION
     Route: 050
     Dates: start: 20120630, end: 20120630

REACTIONS (4)
  - SWELLING [None]
  - ERYTHEMA [None]
  - GENITAL PAIN [None]
  - CRYING [None]
